FAERS Safety Report 9352552 (Version 1)
Quarter: 2013Q2

REPORT INFORMATION
  Report Type: Spontaneous
  Country: ZA (occurrence: ZA)
  Receive Date: 20130618
  Receipt Date: 20130618
  Transmission Date: 20140414
  Serious: Yes (Other)
  Sender: FDA-Public Use
  Company Number: ZA-ROCHE-1236644

PATIENT
  Sex: Female

DRUGS (5)
  1. MABTHERA [Suspect]
     Indication: DIFFUSE LARGE B-CELL LYMPHOMA
     Dosage: FOURTH INFUSION
     Route: 065
  2. CYCLOPHOSPHAMIDE [Concomitant]
     Route: 065
  3. DOXORUBICIN HCL [Concomitant]
     Route: 065
  4. ONCOVIN [Concomitant]
  5. PREDNISONE [Concomitant]

REACTIONS (2)
  - Blood sodium decreased [Unknown]
  - Convulsion [Unknown]
